FAERS Safety Report 10430890 (Version 1)
Quarter: 2014Q1

REPORT INFORMATION
  Report Type: Spontaneous
  Country: US (occurrence: None)
  Receive Date: 20140304
  Receipt Date: 20140304
  Transmission Date: 20141002
  Serious: Yes (Other)
  Sender: FDA-Public Use
  Company Number: RB-56748-2013

PATIENT
  Age: 33 Year
  Sex: Female

DRUGS (8)
  1. SUBUTEX 8 MG [Suspect]
     Indication: DRUG DEPENDENCE
     Route: 060
     Dates: start: 2013, end: 2013
  2. HEROIN [Suspect]
     Indication: SUBSTANCE USE
  3. COCAINE [Suspect]
     Indication: SUBSTANCE USE
  4. MARIJUANA [Suspect]
     Indication: SUBSTANCE USE
  5. XANAX [Suspect]
     Indication: ANXIETY
  6. ABILIFY [Concomitant]
  7. AMITRIPTYLINE [Concomitant]
  8. NICOTINE [Concomitant]

REACTIONS (4)
  - Exposure during pregnancy [None]
  - Drug abuse [None]
  - Convulsion [None]
  - Drug dependence [None]
